FAERS Safety Report 25797302 (Version 1)
Quarter: 2025Q3

REPORT INFORMATION
  Report Type: Spontaneous
  Country: US (occurrence: None)
  Receive Date: 20250912
  Receipt Date: 20250912
  Transmission Date: 20251021
  Serious: Yes (Hospitalization)
  Sender: FDA-CTU
  Company Number: None

PATIENT
  Age: 74 Year
  Sex: Male
  Weight: 86.3 kg

DRUGS (2)
  1. MYCOPHENOLATE MOFETIL [Suspect]
     Active Substance: MYCOPHENOLATE MOFETIL
     Indication: Heart transplant
     Dosage: OTHER QUANTITY : ONE TABLET;?FREQUENCY : TWICE A DAY;?
     Route: 048
     Dates: start: 20250320, end: 202508
  2. ENVARSUS XR [Suspect]
     Active Substance: TACROLIMUS
     Indication: Heart transplant
     Dosage: OTHER QUANTITY : 9 TABLETS;?FREQUENCY : DAILY;?
     Route: 048
     Dates: start: 20250320

REACTIONS (2)
  - Cytomegalovirus infection [None]
  - Norovirus infection [None]

NARRATIVE: CASE EVENT DATE: 20250827
